FAERS Safety Report 20850918 (Version 4)
Quarter: 2022Q3

REPORT INFORMATION
  Report Type: Spontaneous
  Country: FR (occurrence: FR)
  Receive Date: 20220519
  Receipt Date: 20220721
  Transmission Date: 20221027
  Serious: Yes (Hospitalization, Other)
  Sender: FDA-Public Use
  Company Number: FR-SA-2022SA158534

PATIENT
  Age: 51 Year
  Sex: Female

DRUGS (3)
  1. OXALIPLATIN [Suspect]
     Active Substance: OXALIPLATIN
     Indication: Colon cancer
     Dosage: 85 MG/M2
     Dates: start: 20220215, end: 20220412
  2. FLUOROURACIL [Suspect]
     Active Substance: FLUOROURACIL
     Indication: Colon cancer
     Dosage: 2400 MG/M2
     Dates: start: 20220215, end: 20220412
  3. LEVOLEUCOVORIN [Suspect]
     Active Substance: LEVOLEUCOVORIN
     Indication: Colon cancer
     Dosage: 200 MG/M2
     Dates: start: 20220215, end: 20220412

REACTIONS (5)
  - Device related infection [Recovered/Resolved]
  - Hyperthermia [Unknown]
  - Medical device site inflammation [Recovering/Resolving]
  - Purulent discharge [Recovering/Resolving]
  - COVID-19 [Unknown]

NARRATIVE: CASE EVENT DATE: 20220416
